FAERS Safety Report 5473931-1 (Version None)
Quarter: 2007Q3

REPORT INFORMATION
  Report Type: 
  Country: None (occurrence: None)
  Receive Date: 20070831
  Receipt Date: 20070625
  Transmission Date: 20080115
  Serious: No
  Sender: FDA-Public Use
  Company Number: 242418

PATIENT
  Age: 73 Year
  Sex: Female

DRUGS (5)
  1. LUCENTIS [Suspect]
     Indication: MACULAR DEGENERATION
     Dosage: INTRAVITREAL
     Dates: start: 20070415
  2. OCUVITE (ASCORBIC ACID, BETA CAROTENE, COPPER NOS, LUTEIN, SELENIUM NO [Concomitant]
  3. MULTIVITAMIN (MULTIVITAMINS NOS) [Concomitant]
  4. FISH OIL (FISH OIL) [Concomitant]
  5. OSTEO BI-FLEX PRODUCT NOS (CHONDROITIN SULFATE, GENERIC COMPONENT(S) N [Concomitant]

REACTIONS (1)
  - ABNORMAL SENSATION IN EYE [None]
